FAERS Safety Report 8528242 (Version 2)
Quarter: 2012Q4

REPORT INFORMATION
  Report Type: 
  Country: US (occurrence: US)
  Receive Date: 20120424
  Receipt Date: 20121002
  Transmission Date: 20130627
  Serious: Yes (Other)
  Sender: FDA-Public Use
  Company Number: US-ROCHE-1062310

PATIENT
  Sex: Female
  Weight: 56.75 kg

DRUGS (5)
  1. ACCUTANE [Suspect]
     Indication: ACNE CYSTIC
     Route: 065
     Dates: start: 1980
  2. ACCUTANE [Suspect]
     Route: 065
     Dates: start: 1990
  3. ACCUTANE [Suspect]
     Route: 065
     Dates: start: 20050701, end: 20051121
  4. ACCUTANE [Suspect]
     Route: 065
     Dates: start: 1984
  5. ACCUTANE [Suspect]
     Route: 065
     Dates: start: 1993

REACTIONS (5)
  - Crohn^s disease [Unknown]
  - Colitis ulcerative [Unknown]
  - Inflammatory bowel disease [Unknown]
  - Depression [Unknown]
  - Irritable bowel syndrome [Unknown]
